FAERS Safety Report 6231880-5 (Version None)
Quarter: 2009Q2

REPORT INFORMATION
  Report Type: 
  Country: None (occurrence: None)
  Receive Date: 20090612
  Receipt Date: 20090612
  Transmission Date: 20091009
  Serious: Yes (Death, Life-Threatening)
  Sender: FDA-Public Use
  Company Number: None

PATIENT
  Age: 75 Year
  Sex: Female
  Weight: 62.9 kg

DRUGS (12)
  1. ACTIVASE [Suspect]
     Indication: CEREBROVASCULAR ACCIDENT
     Dosage: 60 MG OTO IV
     Route: 042
     Dates: start: 20090504
  2. DIAZEPAM [Concomitant]
  3. MECLIZINE [Concomitant]
  4. ASPIRIN [Concomitant]
  5. EVISTA [Concomitant]
  6. SYNTHROID [Concomitant]
  7. BENAZEPRIL-HCTZ [Concomitant]
  8. SIMVASTATIN [Concomitant]
  9. LABETALOL HCL [Concomitant]
  10. ETOMIDATE [Concomitant]
  11. EPINEPHRINE [Concomitant]
  12. MORPHINE [Concomitant]

REACTIONS (6)
  - BRAIN STEM HAEMORRHAGE [None]
  - INTRAVENTRICULAR HAEMORRHAGE [None]
  - NAUSEA [None]
  - PULSE ABSENT [None]
  - UNRESPONSIVE TO STIMULI [None]
  - VOMITING [None]
